FAERS Safety Report 19279351 (Version 2)
Quarter: 2021Q2

REPORT INFORMATION
  Report Type: Spontaneous
  Country: IT (occurrence: IT)
  Receive Date: 20210520
  Receipt Date: 20210610
  Transmission Date: 20210717
  Serious: Yes (Other)
  Sender: FDA-Public Use
  Company Number: IT-RECORDATI RARE DISEASE INC.-2021001817

PATIENT

DRUGS (6)
  1. VINCRISTINE SULFATE. [Suspect]
     Active Substance: VINCRISTINE SULFATE
     Indication: SARCOMA
     Dosage: UNK
     Route: 065
  2. EPIRUBICIN [Suspect]
     Active Substance: EPIRUBICIN
     Indication: SARCOMA
     Dosage: UNK
     Route: 065
  3. CARBOPLATIN. [Suspect]
     Active Substance: CARBOPLATIN
     Indication: SARCOMA
     Dosage: UNK
     Route: 065
  4. IFOSFAMIDE. [Suspect]
     Active Substance: IFOSFAMIDE
     Indication: SARCOMA
     Dosage: UNK
     Route: 065
  5. UNSPECIFIED DACTINOMYCIN [Suspect]
     Active Substance: DACTINOMYCIN
     Indication: SARCOMA
     Dosage: UNK
     Route: 065
  6. ETOPOSIDE. [Suspect]
     Active Substance: ETOPOSIDE
     Indication: SARCOMA
     Dosage: UNK
     Route: 065

REACTIONS (2)
  - Salivary gland cancer [Recovered/Resolved]
  - Mucoepidermoid carcinoma [Recovered/Resolved]
